FAERS Safety Report 20822465 (Version 1)
Quarter: 2022Q2

REPORT INFORMATION
  Report Type: Spontaneous
  Country: US (occurrence: US)
  Receive Date: 20220512
  Receipt Date: 20220512
  Transmission Date: 20220721
  Serious: Yes (Other)
  Sender: FDA-Public Use
  Company Number: US-ATLANTIDE PHARMACEUTICALS AG-2022WLD000005

PATIENT
  Age: 35 Year
  Sex: Male

DRUGS (1)
  1. LISINOPRIL [Suspect]
     Active Substance: LISINOPRIL
     Indication: Hypertension
     Dosage: 20 MILLIGRAM ONCE DAILY
     Route: 065

REACTIONS (1)
  - Pemphigus [Recovering/Resolving]
